FAERS Safety Report 16321993 (Version 1)
Quarter: 2019Q2

REPORT INFORMATION
  Report Type: Spontaneous
  Country: US (occurrence: US)
  Receive Date: 20190516
  Receipt Date: 20190516
  Transmission Date: 20190711
  Serious: No
  Sender: FDA-Public Use
  Company Number: US-HERON THERAPEUTICS, INC-HRTX-2019-000524

PATIENT
  Age: 83 Year
  Sex: Male
  Weight: 68.27 kg

DRUGS (1)
  1. CINVANTI [Suspect]
     Active Substance: APREPITANT
     Indication: OESOPHAGEAL CARCINOMA
     Dosage: 130 MG, SINGLE
     Route: 042
     Dates: start: 20190213, end: 20190213

REACTIONS (3)
  - Product administration error [Unknown]
  - Product leakage [Unknown]
  - No adverse event [Unknown]

NARRATIVE: CASE EVENT DATE: 20190213
